FAERS Safety Report 6980990-3 (Version None)
Quarter: 2010Q3

REPORT INFORMATION
  Report Type: 
  Country: None (occurrence: None)
  Receive Date: 20100914
  Receipt Date: 20100909
  Transmission Date: 20110219
  Serious: Yes (Hospitalization)
  Sender: FDA-Public Use
  Company Number: B0673850A

PATIENT
  Sex: Male

DRUGS (2)
  1. AUGMENTIN '125' [Suspect]
     Indication: PRODUCT USED FOR UNKNOWN INDICATION
     Route: 048
     Dates: start: 20100119, end: 20100128
  2. FLAGYL [Concomitant]
     Route: 048
     Dates: start: 20100121, end: 20100125

REACTIONS (6)
  - ABDOMINAL PAIN [None]
  - CLOSTRIDIUM TEST POSITIVE [None]
  - DIARRHOEA [None]
  - PSEUDOMEMBRANOUS COLITIS [None]
  - PYREXIA [None]
  - RECTAL TENESMUS [None]
